FAERS Safety Report 7777501 (Version 2)
Quarter: 2015Q4

REPORT INFORMATION
  Report Type: Spontaneous
  Country: US (occurrence: US)
  Receive Date: 20110128
  Receipt Date: 20151204
  Transmission Date: 20160305
  Serious: Yes (Life-Threatening, Hospitalization)
  Sender: FDA-Public Use
  Company Number: US-BAYER-201023119NA

PATIENT
  Age: 36 Year
  Sex: Female
  Weight: 62 kg

DRUGS (11)
  1. FOLTX [Concomitant]
     Active Substance: CYANOCOBALAMIN CO-57\FOLIC ACID\PYRIDOXINE HYDROCHLORIDE
  2. ASPIRIN. [Concomitant]
     Active Substance: ASPIRIN
  3. FLURAZEPAM [Concomitant]
     Active Substance: FLURAZEPAM\FLURAZEPAM HYDROCHLORIDE
  4. YASMIN [Suspect]
     Active Substance: DROSPIRENONE\ETHINYL ESTRADIOL
     Dosage: UNK
     Route: 048
     Dates: start: 20040830, end: 200807
  5. XANAX [Concomitant]
     Active Substance: ALPRAZOLAM
     Indication: ANXIETY
  6. LORAZEPAM. [Concomitant]
     Active Substance: LORAZEPAM
  7. ACCUTANE [Concomitant]
     Active Substance: ISOTRETINOIN
  8. MAXALT [Concomitant]
     Active Substance: RIZATRIPTAN BENZOATE
  9. OCELLA [Suspect]
     Active Substance: DROSPIRENONE\ETHINYL ESTRADIOL
     Dosage: UNK
     Route: 048
     Dates: start: 20080717, end: 200909
  10. YAZ [Suspect]
     Active Substance: DROSPIRENONE\ETHINYL ESTRADIOL
     Dosage: UNK
  11. INDERAL [Concomitant]
     Active Substance: PROPRANOLOL HYDROCHLORIDE
     Indication: ANXIETY

REACTIONS (9)
  - Dysarthria [Recovered/Resolved with Sequelae]
  - Transient ischaemic attack [Recovered/Resolved with Sequelae]
  - Transient ischaemic attack [Recovered/Resolved with Sequelae]
  - Paraesthesia [Recovered/Resolved with Sequelae]
  - Depression [None]
  - Hypokalaemia [None]
  - VIIth nerve paralysis [Recovered/Resolved with Sequelae]
  - Hemianaesthesia [Recovered/Resolved with Sequelae]
  - Headache [Recovered/Resolved with Sequelae]

NARRATIVE: CASE EVENT DATE: 20060406
